FAERS Safety Report 17646341 (Version 1)
Quarter: 2020Q2

REPORT INFORMATION
  Report Type: Spontaneous
  Country: TN (occurrence: TN)
  Receive Date: 20200408
  Receipt Date: 20200408
  Transmission Date: 20200713
  Serious: Yes (Life-Threatening, Other)
  Sender: FDA-Public Use
  Company Number: NVSC2020TN094548

PATIENT
  Age: 31 Year
  Sex: Female

DRUGS (1)
  1. METFORMIN [Suspect]
     Active Substance: METFORMIN HYDROCHLORIDE
     Indication: TYPE 2 DIABETES MELLITUS
     Dosage: 6000 MG
     Route: 065

REACTIONS (8)
  - Intentional overdose [Unknown]
  - Neurological symptom [Unknown]
  - Lactic acidosis [Recovering/Resolving]
  - Renal failure [Recovering/Resolving]
  - Anuria [Recovering/Resolving]
  - Haemodynamic instability [Unknown]
  - Hepatic failure [Recovering/Resolving]
  - Toxicity to various agents [Unknown]
